FAERS Safety Report 13952680 (Version 1)
Quarter: 2017Q3

REPORT INFORMATION
  Report Type: Spontaneous
  Country: GB (occurrence: GB)
  Receive Date: 20170911
  Receipt Date: 20170911
  Transmission Date: 20171128
  Serious: Yes (Hospitalization)
  Sender: FDA-Public Use
  Company Number: GB-TORRENT-00015572

PATIENT
  Age: 66 Year
  Sex: Female
  Weight: 112 kg

DRUGS (7)
  1. DEXAMETHASONE. [Suspect]
     Active Substance: DEXAMETHASONE
  2. OCTENISAN (OCTENIDINE) [Suspect]
     Active Substance: OCTENIDINE
  3. LEVETIRACETAM. [Suspect]
     Active Substance: LEVETIRACETAM
  4. INDAPAMIDE. [Suspect]
     Active Substance: INDAPAMIDE
  5. LEVOTHYROXINE. [Suspect]
     Active Substance: LEVOTHYROXINE
  6. OMEPRAZOLE. [Suspect]
     Active Substance: OMEPRAZOLE
  7. PERINDOPRIL [Suspect]
     Active Substance: PERINDOPRIL

REACTIONS (7)
  - Stevens-Johnson syndrome [Not Recovered/Not Resolved]
  - Incorrect dose administered [Unknown]
  - Hypotension [Unknown]
  - Dizziness [Unknown]
  - Rash [Unknown]
  - Blister [Unknown]
  - Product packaging confusion [Unknown]

NARRATIVE: CASE EVENT DATE: 20170816
